FAERS Safety Report 18252992 (Version 5)
Quarter: 2020Q4

REPORT INFORMATION
  Report Type: Spontaneous
  Country: US (occurrence: US)
  Receive Date: 20200910
  Receipt Date: 20201207
  Transmission Date: 20210113
  Serious: No
  Sender: FDA-Public Use
  Company Number: US-PFIZER INC-2020340860

PATIENT
  Age: 9 Year
  Sex: Female
  Weight: 22.68 kg

DRUGS (1)
  1. GENOTROPIN [Suspect]
     Active Substance: SOMATROPIN
     Indication: SHORT STATURE
     Dosage: 1 MG, 1X/DAY (1 MG BY INJECTION ONCE DAILY AT BEDTIME)
     Dates: start: 202007, end: 2020

REACTIONS (3)
  - Product storage error [Unknown]
  - Drug dose omission by device [Unknown]
  - Device information output issue [Unknown]

NARRATIVE: CASE EVENT DATE: 2020
